FAERS Safety Report 9288250 (Version 1)
Quarter: 2013Q2

REPORT INFORMATION
  Report Type: Spontaneous
  Country: US (occurrence: US)
  Receive Date: 20130514
  Receipt Date: 20130514
  Transmission Date: 20140414
  Serious: Yes (Hospitalization, Other)
  Sender: FDA-Public Use
  Company Number: US-PFIZER INC-2013146770

PATIENT
  Age: 69 Year
  Sex: Female
  Weight: 130 kg

DRUGS (8)
  1. TIKOSYN [Suspect]
     Indication: ATRIAL FIBRILLATION
     Dosage: 250 UG, 2X/DAY
     Route: 048
     Dates: start: 20130304, end: 20130508
  2. TIKOSYN [Suspect]
     Dosage: 250 UG, 2X/DAY
     Route: 048
     Dates: start: 20130509
  3. COUMADINE [Concomitant]
     Dosage: UNK
  4. ALLOPURINOL [Concomitant]
     Dosage: UNK
  5. DILTIAZEM [Concomitant]
     Dosage: UNK
  6. LOSARTAN [Concomitant]
     Dosage: UNK
  7. METOLAZONE [Concomitant]
     Dosage: UNK
  8. AMARYL [Concomitant]
     Dosage: UNK

REACTIONS (4)
  - Chest pain [Recovered/Resolved]
  - Discomfort [Recovered/Resolved]
  - Malaise [Recovered/Resolved]
  - Blood potassium decreased [Unknown]
